FAERS Safety Report 10396113 (Version 5)
Quarter: 2014Q4

REPORT INFORMATION
  Report Type: Report from Study
  Country: ES (occurrence: ES)
  Receive Date: 20140820
  Receipt Date: 20141021
  Transmission Date: 20150528
  Serious: Yes (Hospitalization)
  Sender: FDA-Public Use
  Company Number: ES-BAYER-2014-120052

PATIENT
  Age: 76 Year
  Sex: Male
  Weight: 46 kg

DRUGS (4)
  1. MOVICOL [MACROGOL,POTASSIUM CHLORIDE,SODIUM BICARBONATE] [Concomitant]
     Indication: CONSTIPATION
     Dosage: UNK
     Route: 048
  2. INSULIN [INSULIN] [Concomitant]
     Active Substance: INSULIN NOS
     Indication: DIABETES MELLITUS
     Dosage: 10 UI DAILY
     Route: 042
  3. REGORAFENIB [Suspect]
     Active Substance: REGORAFENIB
     Indication: COLORECTAL CANCER METASTATIC
     Dosage: 160 MG, QD
     Route: 048
     Dates: start: 20140715, end: 20140805
  4. OMEPRAZOL [Concomitant]
     Active Substance: OMEPRAZOLE
     Indication: PROPHYLAXIS
     Dosage: 40 MG TOTAL DAILY DOSE
     Route: 048

REACTIONS (2)
  - Pneumonia [Recovered/Resolved]
  - General physical health deterioration [None]

NARRATIVE: CASE EVENT DATE: 20140809
